FAERS Safety Report 21376566 (Version 1)
Quarter: 2022Q3

REPORT INFORMATION
  Report Type: Spontaneous
  Country: US (occurrence: None)
  Receive Date: 20220924
  Receipt Date: 20220924
  Transmission Date: 20221027
  Serious: Yes (Hospitalization)
  Sender: FDA-Public Use
  Company Number: None

PATIENT
  Sex: Male
  Weight: 121.9 kg

DRUGS (2)
  1. CARBOPLATIN [Suspect]
     Active Substance: CARBOPLATIN
     Dates: end: 20220913
  2. TAXOL [Suspect]
     Active Substance: PACLITAXEL
     Dates: end: 20220823

REACTIONS (6)
  - Dyspnoea [None]
  - Cough [None]
  - Respiratory distress [None]
  - Tumour compression [None]
  - Non-small cell lung cancer [None]
  - Condition aggravated [None]

NARRATIVE: CASE EVENT DATE: 20220916
